FAERS Safety Report 14525578 (Version 2)
Quarter: 2018Q2

REPORT INFORMATION
  Report Type: Spontaneous
  Country: US (occurrence: US)
  Receive Date: 20180213
  Receipt Date: 20180422
  Transmission Date: 20180711
  Serious: Yes (Other)
  Sender: FDA-Public Use
  Company Number: US-APOTEX-2018AP006700

PATIENT
  Age: 32 Year
  Sex: Male

DRUGS (16)
  1. ALPRAZOLAM. [Concomitant]
     Active Substance: ALPRAZOLAM
     Indication: PRODUCT USED FOR UNKNOWN INDICATION
     Dosage: UNK
     Route: 065
  2. PRAZOSIN. [Concomitant]
     Active Substance: PRAZOSIN
     Indication: PRODUCT USED FOR UNKNOWN INDICATION
     Dosage: UNK
     Route: 065
  3. DESIPRAMINE [Concomitant]
     Active Substance: DESIPRAMINE
     Indication: PRODUCT USED FOR UNKNOWN INDICATION
     Dosage: UNK
     Route: 065
  4. CLONAZEPAM. [Concomitant]
     Active Substance: CLONAZEPAM
     Indication: PRODUCT USED FOR UNKNOWN INDICATION
     Dosage: 8 MG, DAILY
     Route: 065
  5. PROPRANOLOL [Concomitant]
     Active Substance: PROPRANOLOL HYDROCHLORIDE
     Indication: PRODUCT USED FOR UNKNOWN INDICATION
     Dosage: 40 MG, BID
     Route: 065
  6. BUPROPION. [Suspect]
     Active Substance: BUPROPION
     Indication: MENTAL DISORDER
     Dosage: UNK
     Route: 065
  7. PAROXETINE. [Suspect]
     Active Substance: PAROXETINE
     Indication: MENTAL DISORDER
     Dosage: 60 MG, DAILY
     Route: 065
  8. ARIPIPRAZOLE. [Suspect]
     Active Substance: ARIPIPRAZOLE
     Indication: MENTAL DISORDER
     Dosage: UNK
     Route: 065
  9. QUETIAPINE. [Concomitant]
     Active Substance: QUETIAPINE
     Indication: PRODUCT USED FOR UNKNOWN INDICATION
     Dosage: 200 MG, Q.H.S.
     Route: 065
  10. MIRTAZAPINE. [Concomitant]
     Active Substance: MIRTAZAPINE
     Indication: PRODUCT USED FOR UNKNOWN INDICATION
     Dosage: UNK
     Route: 065
  11. PAROXETINE. [Suspect]
     Active Substance: PAROXETINE
     Dosage: UPTO 80 MG, DAILY
     Route: 065
  12. CITALOPRAM [Suspect]
     Active Substance: CITALOPRAM HYDROBROMIDE
     Indication: MENTAL DISORDER
     Dosage: 40 MG, DAILY
     Route: 065
  13. DULOXETINE. [Suspect]
     Active Substance: DULOXETINE
     Indication: MENTAL DISORDER
     Dosage: 120 MG, DAILY
     Route: 065
  14. NEFAZODONE [Concomitant]
     Active Substance: NEFAZODONE
     Indication: MENTAL DISORDER
     Dosage: 300 MG, DAILY
     Route: 065
  15. SERTRALINE [Suspect]
     Active Substance: SERTRALINE HYDROCHLORIDE
     Indication: MENTAL DISORDER
     Dosage: 200 MG, DAILY
     Route: 065
  16. FLUVOXAMINE [Suspect]
     Active Substance: FLUVOXAMINE
     Indication: MENTAL DISORDER
     Dosage: 200 MG, DAILY
     Route: 065

REACTIONS (4)
  - Anxiety [Unknown]
  - Drug ineffective [Unknown]
  - Akathisia [Unknown]
  - Drug effect decreased [Unknown]
